FAERS Safety Report 14493463 (Version 1)
Quarter: 2018Q1

REPORT INFORMATION
  Report Type: Spontaneous
  Country: US (occurrence: US)
  Receive Date: 20180206
  Receipt Date: 20180206
  Transmission Date: 20180509
  Serious: Yes (Hospitalization)
  Sender: FDA-Public Use
  Company Number: None

PATIENT
  Age: 68 Year
  Sex: Female
  Weight: 66.68 kg

DRUGS (3)
  1. LEVAQUIN [Suspect]
     Active Substance: LEVOFLOXACIN
     Indication: INFLUENZA
     Dosage: 500MG 1 TABLET EVERY MORNING BY MOUTH
     Route: 048
     Dates: start: 20171223, end: 20171227
  2. PROBIOTIC [Concomitant]
     Active Substance: PROBIOTICS NOS
  3. LEVAQUIN [Suspect]
     Active Substance: LEVOFLOXACIN
     Indication: PNEUMONIA
     Dosage: 500MG 1 TABLET EVERY MORNING BY MOUTH
     Route: 048
     Dates: start: 20171223, end: 20171227

REACTIONS (1)
  - Chest pain [None]

NARRATIVE: CASE EVENT DATE: 20171230
